FAERS Safety Report 24558478 (Version 1)
Quarter: 2024Q4

REPORT INFORMATION
  Report Type: Spontaneous
  Country: US (occurrence: US)
  Receive Date: 20241029
  Receipt Date: 20241029
  Transmission Date: 20250114
  Serious: Yes (Hospitalization)
  Sender: AMGEN
  Company Number: US-AMGEN-USASP2024211601

PATIENT
  Age: 60 Year
  Sex: Female

DRUGS (5)
  1. CINACALCET HYDROCHLORIDE [Suspect]
     Active Substance: CINACALCET HYDROCHLORIDE
     Indication: Hyperparathyroidism primary
     Dosage: 60 MILLIGRAM, BID
     Route: 048
  2. CALCITONIN [Concomitant]
     Active Substance: CALCITONIN
  3. SALINE [Concomitant]
     Active Substance: SODIUM CHLORIDE
     Dosage: APPROXIMATELY 5 L PER DAY
  4. FUROSEMIDE [Concomitant]
     Active Substance: FUROSEMIDE
  5. ERGOCALCIFEROL [Concomitant]
     Active Substance: ERGOCALCIFEROL
     Dosage: 50000 INTERNATIONAL UNIT
     Route: 048

REACTIONS (2)
  - Pneumonia aspiration [Unknown]
  - Hungry bone syndrome [Unknown]
